FAERS Safety Report 5423076-1 (Version None)
Quarter: 2007Q3

REPORT INFORMATION
  Report Type: 
  Country: None (occurrence: None)
  Receive Date: 20070821
  Receipt Date: 20070814
  Transmission Date: 20080115
  Serious: Yes (Life-Threatening, Hospitalization)
  Sender: FDA-Public Use
  Company Number: 236780K07USA

PATIENT
  Age: 54 Year
  Sex: Male

DRUGS (1)
  1. REBIF [Suspect]
     Indication: MULTIPLE SCLEROSIS
     Dates: start: 20070326, end: 20070701

REACTIONS (4)
  - CATHETER SITE INFECTION [None]
  - MYOCARDIAL INFARCTION [None]
  - PNEUMONIA [None]
  - STAPHYLOCOCCAL INFECTION [None]
